FAERS Safety Report 21844516 (Version 1)
Quarter: 2023Q1

REPORT INFORMATION
  Report Type: Spontaneous
  Country: US (occurrence: US)
  Receive Date: 20230110
  Receipt Date: 20230110
  Transmission Date: 20230418
  Serious: No
  Sender: FDA-Public Use
  Company Number: US-Ipsen Biopharmaceuticals, Inc.-2023-00311

PATIENT
  Sex: Male
  Weight: 48.033 kg

DRUGS (1)
  1. INCRELEX [Suspect]
     Active Substance: MECASERMIN
     Indication: Product used for unknown indication
     Dosage: 40MG (10MG/ML) INJECT 4.2MG UNDER THE SKIN TWICE A DAY.
     Route: 058

REACTIONS (6)
  - Illness [Unknown]
  - Nasal congestion [Unknown]
  - Abdominal pain upper [Unknown]
  - Dizziness [Unknown]
  - Headache [Unknown]
  - Product dose omission issue [Unknown]
